FAERS Safety Report 14230419 (Version 2)
Quarter: 2017Q4

REPORT INFORMATION
  Report Type: Report from Study
  Country: US (occurrence: US)
  Receive Date: 20171128
  Receipt Date: 20171218
  Transmission Date: 20180321
  Serious: Yes (Hospitalization, Other)
  Sender: FDA-Public Use
  Company Number: US-PFIZER INC-2017413464

PATIENT
  Age: 58 Year
  Sex: Male

DRUGS (23)
  1. OCTREOTIDE ACETATE. [Concomitant]
     Active Substance: OCTREOTIDE ACETATE
     Dosage: 30 MG, Q 4 WEEKS FOR 4 DOSES
     Route: 030
     Dates: start: 20150210
  2. ACETAMINOPHEN/BUTALBITAL/CAFFEINE [Concomitant]
     Active Substance: ACETAMINOPHEN\BUTALBITAL\CAFFEINE
     Indication: HEADACHE
     Dosage: 2 DF, AS NEEDED
     Route: 048
  3. VITAMIN D3 [Concomitant]
     Active Substance: CHOLECALCIFEROL
     Dosage: 5000 IU, DAILY
     Route: 048
  4. CREON [Concomitant]
     Active Substance: PANCRELIPASE AMYLASE\PANCRELIPASE LIPASE\PANCRELIPASE PROTEASE
     Dosage: UNK, THRICE A DAY
     Route: 048
  5. PREVACID [Concomitant]
     Active Substance: LANSOPRAZOLE
     Dosage: 30 MG, DAILY
     Route: 048
     Dates: start: 20081215
  6. PREDNISONE. [Concomitant]
     Active Substance: PREDNISONE
     Dosage: 10 MG, UNK (TAKE AS DIRECTED )
     Route: 048
     Dates: start: 20081202
  7. PREDNISONE. [Concomitant]
     Active Substance: PREDNISONE
     Dosage: 100 MG, DAILY
     Route: 048
  8. SUTENT [Suspect]
     Active Substance: SUNITINIB MALATE
     Dosage: 37.5 MG, DAILY
     Route: 048
     Dates: start: 20170920, end: 20171031
  9. SANDOSTATIN [Concomitant]
     Active Substance: OCTREOTIDE ACETATE
     Dosage: 20 MG, UNK
     Route: 030
  10. OXYCODONE HCI [Concomitant]
     Dosage: 5 MG, AS NEEDED (T.I.D. FOR 10 DAYS)
     Route: 048
     Dates: start: 20171117
  11. FAMOTIDINE. [Concomitant]
     Active Substance: FAMOTIDINE
     Dosage: 20 MG, DAILY
     Route: 048
  12. SUTENT [Suspect]
     Active Substance: SUNITINIB MALATE
     Dosage: 25 MG, ONCE DAILY
     Route: 048
     Dates: start: 20170829
  13. PREVACID [Concomitant]
     Active Substance: LANSOPRAZOLE
     Dosage: 1 DF, DAILY
     Route: 048
  14. PERCOCET [Concomitant]
     Active Substance: ACETAMINOPHEN\OXYCODONE HYDROCHLORIDE
     Indication: BONE PAIN
     Dosage: UNK, AS NEEDED (BID )
     Route: 048
  15. VITAMIN D3 [Concomitant]
     Active Substance: CHOLECALCIFEROL
     Dosage: 2000 IU, DAILY
     Route: 048
  16. FIORICET [Concomitant]
     Active Substance: ACETAMINOPHEN\BUTALBITAL\CAFFEINE
     Dosage: 2 DF, AS NEEDED (2 TAB Q4H PRN HA)
  17. SUTENT [Suspect]
     Active Substance: SUNITINIB MALATE
     Indication: GASTROINTESTINAL STROMAL TUMOUR
     Dosage: 37.5 MG, ONCE DAILY
     Route: 048
     Dates: start: 20170920, end: 20171107
  18. PREDNISONE. [Concomitant]
     Active Substance: PREDNISONE
     Dosage: 200 MG, DAILY
     Route: 048
  19. NEXIUM [Concomitant]
     Active Substance: ESOMEPRAZOLE MAGNESIUM
     Dosage: 20 MG, DAILY
     Route: 048
  20. PANCRELIPASE. [Concomitant]
     Active Substance: PANCRELIPASE
     Dosage: 1 DF, 3X/DAY (6000 UNITS-19,000 UNITS-30,000 UNITS)
     Route: 048
  21. ESOMEPRAZOLE MAGNESIUM. [Concomitant]
     Active Substance: ESOMEPRAZOLE MAGNESIUM
     Dosage: 40 MG, DAILY
     Route: 048
     Dates: start: 20090817
  22. PREDNISONE. [Concomitant]
     Active Substance: PREDNISONE
     Dosage: 100 MG, DAILY
     Route: 048
  23. LOSARTAN. [Concomitant]
     Active Substance: LOSARTAN
     Dosage: 25 MG, DAILY
     Route: 048

REACTIONS (27)
  - Internal haemorrhage [Unknown]
  - Constipation [Unknown]
  - Dysgeusia [Unknown]
  - Pancreatic failure [Unknown]
  - Weight fluctuation [Unknown]
  - Lip disorder [Unknown]
  - Bone pain [Unknown]
  - Oral mucosal blistering [Unknown]
  - Abdominal distension [Unknown]
  - Disease recurrence [Unknown]
  - Diarrhoea [Unknown]
  - Haemorrhoids [Unknown]
  - Asthenia [Unknown]
  - Bone pain [Unknown]
  - Oedema peripheral [Not Recovered/Not Resolved]
  - Haematochezia [Unknown]
  - Condition aggravated [Unknown]
  - Carcinoid syndrome [Unknown]
  - Gastrointestinal haemorrhage [Recovered/Resolved]
  - Immune thrombocytopenic purpura [Not Recovered/Not Resolved]
  - Faeces discoloured [Unknown]
  - Decreased appetite [Unknown]
  - Weight decreased [Not Recovered/Not Resolved]
  - Thrombocytopenia [Recovered/Resolved]
  - Rectal haemorrhage [Unknown]
  - Fatigue [Not Recovered/Not Resolved]
  - Ascites [Not Recovered/Not Resolved]

NARRATIVE: CASE EVENT DATE: 2017
